FAERS Safety Report 9803725 (Version 1)
Quarter: 2014Q1

REPORT INFORMATION
  Report Type: Spontaneous
  Country: US (occurrence: US)
  Receive Date: 20140108
  Receipt Date: 20140108
  Transmission Date: 20141002
  Serious: No
  Sender: FDA-Public Use
  Company Number: US-GLAXOSMITHKLINE-A1027453A

PATIENT
  Age: 70 Year
  Sex: Male
  Weight: 96.8 kg

DRUGS (13)
  1. LOVAZA [Suspect]
     Indication: PRODUCT USED FOR UNKNOWN INDICATION
     Route: 048
     Dates: start: 201212
  2. CPAP [Concomitant]
  3. LISINOPRIL [Concomitant]
     Dosage: 40MG PER DAY
     Route: 048
  4. JANUVIA [Concomitant]
     Dosage: 50MG PER DAY
     Route: 048
  5. LIPITOR [Concomitant]
     Dosage: 10MG PER DAY
     Route: 048
  6. PANTOPRAZOLE [Concomitant]
     Dosage: 40MG PER DAY
  7. PLAVIX [Concomitant]
     Dosage: 75MG SEE DOSAGE TEXT
     Route: 048
  8. AMLODIPINE [Concomitant]
     Dosage: 5MG PER DAY
     Route: 048
  9. ADVAIR [Concomitant]
     Dosage: 1PUFF TWICE PER DAY
     Route: 055
  10. SINGULAIR [Concomitant]
     Dosage: 10MG PER DAY
     Route: 048
  11. CILOSTAZOL [Concomitant]
     Dosage: 100MG TWICE PER DAY
     Route: 048
  12. ASPIRIN [Concomitant]
     Dosage: 325MG PER DAY
     Route: 048
  13. PROVENTIL [Concomitant]
     Dosage: 90MCG SEE DOSAGE TEXT
     Route: 055

REACTIONS (2)
  - Sweat gland disorder [Not Recovered/Not Resolved]
  - Skin odour abnormal [Not Recovered/Not Resolved]
